FAERS Safety Report 7592785-0 (Version None)
Quarter: 2011Q3

REPORT INFORMATION
  Report Type: 
  Country: None (occurrence: None)
  Receive Date: 20110706
  Receipt Date: 20110630
  Transmission Date: 20111222
  Serious: Yes (Other)
  Sender: FDA-Public Use
  Company Number: US-PFIZER INC-2011147824

PATIENT
  Sex: Male

DRUGS (2)
  1. CHANTIX [Suspect]
     Dosage: UNK
     Dates: start: 20060601
  2. CHANTIX [Suspect]
     Dosage: UNK
     Dates: start: 20080101

REACTIONS (3)
  - ANXIETY [None]
  - THINKING ABNORMAL [None]
  - SUICIDE ATTEMPT [None]
